FAERS Safety Report 9667702 (Version 3)
Quarter: 2013Q4

REPORT INFORMATION
  Report Type: Spontaneous
  Country: JP (occurrence: JP)
  Receive Date: 20131104
  Receipt Date: 20131121
  Transmission Date: 20140711
  Serious: Yes (Hospitalization)
  Sender: FDA-Public Use
  Company Number: JP-BAYER-2013-082356

PATIENT
  Age: 69 Year
  Sex: Female
  Weight: 39 kg

DRUGS (19)
  1. STIVARGA [Suspect]
     Indication: COLON CANCER
     Dosage: 160 MG, QD ON FOR 2 WEEKS
     Route: 048
     Dates: start: 20130621, end: 20130704
  2. STIVARGA [Suspect]
     Indication: COLON CANCER
     Dosage: 120 MG, QD ON FOR 1 WEEK AND OFF FOR 1 WEEK
     Route: 048
     Dates: start: 20130705, end: 20130711
  3. STIVARGA [Suspect]
     Indication: COLON CANCER
     Dosage: 120 MG, QD ON FOR 3 WEEKS AND OFF FOR 1 WEEK
     Route: 048
     Dates: start: 20130719, end: 20130815
  4. STIVARGA [Suspect]
     Indication: COLON CANCER
     Dosage: 80 MG, QD ON FOR 3 WEEKS AND OFF FOR 2 WEEKS
     Route: 048
     Dates: start: 20130816, end: 20130914
  5. STIVARGA [Suspect]
     Indication: COLON CANCER
     Dosage: 80 MG, QD ON FOR 3 WEEKS AND OFF FOR 2 WEEKS
     Route: 048
     Dates: start: 20130927, end: 20131004
  6. JANUVIA [Concomitant]
     Dosage: 50 MG, OM
     Route: 048
  7. PARIET [Concomitant]
     Indication: GASTRITIS PROPHYLAXIS
     Dosage: 10 MG, OM
     Route: 048
  8. NAIXAN [Concomitant]
     Indication: PROPHYLAXIS
     Dosage: DAILY DOSE 300 MG
     Route: 048
  9. NAIXAN [Concomitant]
     Indication: PYREXIA
  10. ADALAT CR [Concomitant]
     Dosage: DAILY DOSE 40 MG
     Route: 048
  11. LASIX [Concomitant]
     Indication: PROPHYLAXIS
     Dosage: 20 MG, QD
     Route: 048
  12. LASIX [Concomitant]
     Indication: POLYURIA
  13. ALDACTONE A [Concomitant]
     Indication: PROPHYLAXIS
     Dosage: 50 MG, QD
     Route: 048
  14. ALDACTONE A [Concomitant]
     Indication: POLYURIA
  15. HIRUDOID [Concomitant]
     Indication: DRUG TOXICITY PROPHYLAXIS
     Route: 061
  16. HIRUDOID [Concomitant]
     Indication: ADVERSE EVENT
  17. RACOL [Concomitant]
     Dosage: UNK
  18. RACOL [Concomitant]
     Dosage: UNK
  19. PROMAC [POLAPREZINC] [Concomitant]
     Indication: GASTRITIS PROPHYLAXIS
     Dosage: DAILY DOSE 150 MG
     Route: 048

REACTIONS (4)
  - Gastrointestinal ulcer [Recovering/Resolving]
  - Stoma site haemorrhage [Recovered/Resolved]
  - Decreased appetite [Recovering/Resolving]
  - Dehydration [Recovering/Resolving]
